FAERS Safety Report 6679217-1 (Version None)
Quarter: 2010Q2

REPORT INFORMATION
  Report Type: 
  Country: None (occurrence: None)
  Receive Date: 20100413
  Receipt Date: 20100329
  Transmission Date: 20101027
  Serious: Yes (Death, Hospitalization)
  Sender: FDA-Public Use
  Company Number: IT-BAYER-200832672GPV

PATIENT
  Age: 70 Year
  Sex: Male

DRUGS (23)
  1. CAMPATH [Suspect]
     Indication: PERIPHERAL T-CELL LYMPHOMA UNSPECIFIED
     Route: 058
     Dates: start: 20081105, end: 20081105
  2. CAMPATH [Suspect]
     Route: 058
     Dates: start: 20081104, end: 20081104
  3. CAMPATH [Suspect]
     Dosage: DAY 0 OF FIRST CHOP CYCLE
     Route: 058
     Dates: start: 20081101, end: 20081101
  4. PREDNISONE TAB [Suspect]
     Indication: PERIPHERAL T-CELL LYMPHOMA UNSPECIFIED
     Dosage: DAY 1 - 5 OF FIRST CHOP CYCLE
     Route: 065
     Dates: start: 20081105, end: 20081113
  5. CYCLOPHOSPHAMIDE [Suspect]
     Indication: PERIPHERAL T-CELL LYMPHOMA UNSPECIFIED
     Dosage: DAY 1 OF FIRST CHOP CYCLE
     Route: 065
     Dates: start: 20081105, end: 20081113
  6. DOXORUBICIN HCL [Suspect]
     Indication: PERIPHERAL T-CELL LYMPHOMA UNSPECIFIED
     Dosage: DAY 1 OF FIRST CHOP CYCLE
     Route: 065
     Dates: start: 20081105, end: 20081113
  7. VINCRISTINE [Suspect]
     Indication: PERIPHERAL T-CELL LYMPHOMA UNSPECIFIED
     Dosage: DAY 1 OF FIRST CHOP CYCLE
     Route: 065
     Dates: start: 20081105, end: 20081113
  8. METHOTREXATE [Suspect]
     Indication: PERIPHERAL T-CELL LYMPHOMA UNSPECIFIED
     Route: 037
  9. ARA-C [Suspect]
     Indication: PERIPHERAL T-CELL LYMPHOMA UNSPECIFIED
     Route: 037
  10. DEXAMETHASONE [Suspect]
     Indication: PERIPHERAL T-CELL LYMPHOMA UNSPECIFIED
     Route: 037
  11. ZOVIRAX [Concomitant]
     Indication: ANTIVIRAL PROPHYLAXIS
     Route: 042
     Dates: start: 20081113
  12. SPORANOX [Concomitant]
     Indication: ANTIFUNGAL PROPHYLAXIS
     Dosage: TOTAL DAILY DOSE: 200 MG
     Route: 042
     Dates: start: 20081113
  13. IMIPENEM [Concomitant]
     Indication: ANTIBIOTIC PROPHYLAXIS
     Route: 042
     Dates: start: 20081113
  14. PERFALGAN [Concomitant]
     Indication: PYREXIA
     Route: 065
  15. STEROIDS [Concomitant]
     Indication: PYREXIA
     Route: 065
  16. TAZOCIN [Concomitant]
     Indication: ANTIBIOTIC PROPHYLAXIS
     Dosage: TOTAL DAILY DOSE: 4.5 G
     Route: 042
     Dates: start: 20081130, end: 20081208
  17. DOPAMINA [Concomitant]
     Indication: PRESYNCOPE
     Route: 042
     Dates: start: 20081101
  18. DOPAMINA [Concomitant]
     Route: 042
     Dates: start: 20081206, end: 20081216
  19. MORFINA [Concomitant]
     Indication: ABDOMINAL PAIN
     Route: 042
     Dates: start: 20081214
  20. VFEND [Concomitant]
     Indication: FUNGAL INFECTION
     Dosage: TOTAL DAILY DOSE: 200 MG
     Route: 042
     Dates: start: 20081203, end: 20081211
  21. CASPOFUNGIN [Concomitant]
     Indication: FUNGAL INFECTION
     Route: 042
     Dates: start: 20081211
  22. VANCOMYCINA [Concomitant]
     Indication: BACTERIAL INFECTION
     Route: 042
     Dates: start: 20081207, end: 20081209
  23. TARGOCID [Concomitant]
     Indication: BACTERIAL INFECTION
     Route: 042
     Dates: start: 20081209

REACTIONS (7)
  - BRONCHOPULMONARY ASPERGILLOSIS [None]
  - ENTEROCOCCAL BACTERAEMIA [None]
  - LIVER DISORDER [None]
  - MELAENA [None]
  - PANCYTOPENIA [None]
  - PYREXIA [None]
  - T-CELL LYMPHOMA [None]
